FAERS Safety Report 14205986 (Version 3)
Quarter: 2017Q4

REPORT INFORMATION
  Report Type: Report from Study
  Country: US (occurrence: US)
  Receive Date: 20171120
  Receipt Date: 20171226
  Transmission Date: 20180321
  Serious: Yes (Death, Hospitalization)
  Sender: FDA-Public Use
  Company Number: US-ACTELION-A-NJ2017-162642

PATIENT
  Age: 54 Year
  Sex: Female
  Weight: 70.3 kg

DRUGS (5)
  1. UPTRAVI [Suspect]
     Active Substance: SELEXIPAG
     Indication: PULMONARY ARTERIAL HYPERTENSION
     Dosage: 400 MCG, BID
     Route: 048
     Dates: end: 20171202
  2. LETAIRIS [Suspect]
     Active Substance: AMBRISENTAN
     Indication: PRODUCT USED FOR UNKNOWN INDICATION
     Dosage: 5 MG, QD
     Route: 065
     Dates: start: 20120507, end: 20171202
  3. ADEMPAS [Concomitant]
     Active Substance: RIOCIGUAT
  4. DILTIAZEM. [Concomitant]
     Active Substance: DILTIAZEM
  5. OXYGEN. [Concomitant]
     Active Substance: OXYGEN

REACTIONS (7)
  - Scleroderma [Not Recovered/Not Resolved]
  - Abdominal pain upper [Unknown]
  - Hypotension [Unknown]
  - Disease progression [Unknown]
  - Tracheostomy [Unknown]
  - Death [Fatal]
  - Pneumonia aspiration [Unknown]
